FAERS Safety Report 20524048 (Version 1)
Quarter: 2022Q1

REPORT INFORMATION
  Report Type: Spontaneous
  Country: US (occurrence: US)
  Receive Date: 20220228
  Receipt Date: 20220228
  Transmission Date: 20220423
  Serious: Yes (Other)
  Sender: FDA-Public Use
  Company Number: US-MLMSERVICE-20220210-3368531-1

PATIENT

DRUGS (5)
  1. CINACALCET HYDROCHLORIDE [Interacting]
     Active Substance: CINACALCET HYDROCHLORIDE
     Indication: Blood calcium increased
     Dosage: 30 MILLIGRAM, 3 TIMES IN A WEEK
     Route: 048
  2. CINACALCET HYDROCHLORIDE [Interacting]
     Active Substance: CINACALCET HYDROCHLORIDE
     Dosage: 30 MILLIGRAM, QD
     Route: 048
  3. CINACALCET HYDROCHLORIDE [Interacting]
     Active Substance: CINACALCET HYDROCHLORIDE
     Dosage: UNK, RECHALLENGED AFTER A MONTH
     Route: 065
  4. CLOZAPINE [Interacting]
     Active Substance: CLOZAPINE
     Indication: Schizophrenia
     Dosage: 400 MG DAILY (150 MG IN THE MORNING AND 250 MG AT BEDTIME)
     Route: 065
  5. CLOZAPINE [Interacting]
     Active Substance: CLOZAPINE
     Dosage: 375 MG DAILY (125 MG IN THE MORNING AND 250 MG AT BEDTIME), TRIAL
     Route: 065

REACTIONS (2)
  - Torticollis [Recovered/Resolved]
  - Drug interaction [Recovered/Resolved]
